FAERS Safety Report 13633876 (Version 1)
Quarter: 2017Q2

REPORT INFORMATION
  Report Type: Spontaneous
  Country: US (occurrence: US)
  Receive Date: 20170531
  Receipt Date: 20170531
  Transmission Date: 20170830
  Serious: No
  Sender: FDA-Public Use
  Company Number: US-ASTELLAS-1586130

PATIENT
  Age: 64 Year
  Sex: Female

DRUGS (1)
  1. TARCEVA [Suspect]
     Active Substance: ERLOTINIB HYDROCHLORIDE
     Indication: LUNG NEOPLASM MALIGNANT
     Dosage: ON EMPTY STOMACH
     Route: 048

REACTIONS (6)
  - Erythema [Recovered/Resolved]
  - Decreased interest [Unknown]
  - Depressed mood [Unknown]
  - Dry skin [Unknown]
  - Swelling face [Recovered/Resolved]
  - Decreased appetite [Unknown]

NARRATIVE: CASE EVENT DATE: 20150528
